FAERS Safety Report 7425711-5 (Version None)
Quarter: 2011Q2

REPORT INFORMATION
  Report Type: 
  Country: None (occurrence: None)
  Receive Date: 20110420
  Receipt Date: 20110412
  Transmission Date: 20111010
  Serious: Yes (Other)
  Sender: FDA-Public Use
  Company Number: DE-TEVA-277142GER

PATIENT
  Sex: Female

DRUGS (1)
  1. COTRIM DS [Suspect]
     Dosage: 160 MG TRIMETHOPRIM + 800 MG SULFAMETHOXAZOL
     Dates: start: 20110101

REACTIONS (1)
  - INTRA-UTERINE DEATH [None]
